FAERS Safety Report 16094273 (Version 1)
Quarter: 2019Q1

REPORT INFORMATION
  Report Type: Spontaneous
  Country: US (occurrence: US)
  Receive Date: 20190320
  Receipt Date: 20190320
  Transmission Date: 20190418
  Serious: Yes (Hospitalization, Other)
  Sender: FDA-Public Use
  Company Number: US-LUPIN PHARMACEUTICALS INC.-2019-01619

PATIENT
  Age: 64 Year
  Sex: Female
  Weight: 55 kg

DRUGS (2)
  1. RIFABUTIN CAPSULES [Suspect]
     Active Substance: RIFABUTIN
     Indication: ATYPICAL MYCOBACTERIAL INFECTION
     Dosage: 300 MILLIGRAM, QD
     Route: 048
     Dates: start: 20181128, end: 20181214
  2. ISAVUCONAZONIUM SULFATE [Interacting]
     Active Substance: ISAVUCONAZONIUM SULFATE
     Indication: ASPERGILLUS INFECTION
     Dosage: UNK
     Route: 065
     Dates: start: 20180421, end: 20181221

REACTIONS (4)
  - Asthenia [Recovered/Resolved]
  - Fatigue [Recovering/Resolving]
  - Decreased appetite [Recovered/Resolved]
  - Drug interaction [Unknown]

NARRATIVE: CASE EVENT DATE: 20180831
